FAERS Safety Report 9557667 (Version 13)
Quarter: 2014Q1

REPORT INFORMATION
  Report Type: Spontaneous
  Country: IL (occurrence: IL)
  Receive Date: 20130926
  Receipt Date: 20140213
  Transmission Date: 20141002
  Serious: Yes (Disabling)
  Sender: FDA-Public Use
  Company Number: IL-009507513-1308ISR013983

PATIENT
  Age: 59 Year
  Sex: Female
  Weight: 74 kg

DRUGS (9)
  1. PEGINTRON [Suspect]
     Indication: HEPATITIS C
     Dosage: 120 MICROGRAM, UNK
     Dates: start: 20130804, end: 20140119
  2. REBETOL [Suspect]
     Indication: HEPATITIS C
     Dosage: UNK
     Route: 048
  3. REBETOL [Suspect]
     Dosage: DOSAGE: 3 CAPSULES A DAY
     Route: 048
     Dates: start: 2013, end: 20140119
  4. VICTRELIS [Suspect]
     Indication: HEPATITIS C
     Dosage: UNK
     Route: 048
     Dates: start: 20130901, end: 20140119
  5. CYANOCOBALAMIN [Concomitant]
     Dosage: UNK
     Route: 048
  6. URSOFALK [Concomitant]
     Route: 048
  7. LANTON [Concomitant]
     Dosage: UNK
     Route: 048
  8. CIPRALEX [Concomitant]
     Route: 048
  9. CALCIUM (UNSPECIFIED) (+) VITAMIN D (UNSPECIFIED) [Concomitant]
     Route: 048

REACTIONS (24)
  - Haemoglobin decreased [Recovering/Resolving]
  - Insomnia [Recovered/Resolved]
  - Dizziness [Unknown]
  - Vomiting [Recovered/Resolved]
  - Nausea [Recovered/Resolved]
  - Anaemia [Recovering/Resolving]
  - Fatigue [Unknown]
  - Alopecia [Not Recovered/Not Resolved]
  - Dysgeusia [Recovered/Resolved]
  - Bedridden [Recovering/Resolving]
  - Asthenia [Not Recovered/Not Resolved]
  - Stress [Not Recovered/Not Resolved]
  - Pain in extremity [Not Recovered/Not Resolved]
  - Drug dose omission [Unknown]
  - White blood cell count abnormal [Unknown]
  - Neutrophil count abnormal [Unknown]
  - Aphagia [Unknown]
  - Feeling abnormal [Not Recovered/Not Resolved]
  - Glossodynia [Unknown]
  - Malaise [Recovering/Resolving]
  - Depression [Not Recovered/Not Resolved]
  - Pyrexia [Recovering/Resolving]
  - Anxiety [Not Recovered/Not Resolved]
  - Weight decreased [Recovering/Resolving]
